FAERS Safety Report 13054203 (Version 1)
Quarter: 2016Q4

REPORT INFORMATION
  Report Type: Spontaneous
  Country: US (occurrence: US)
  Receive Date: 20161222
  Receipt Date: 20161222
  Transmission Date: 20170207
  Serious: No
  Sender: FDA-Public Use
  Company Number: None

PATIENT

DRUGS (2)
  1. HURRICAINE TOPICAL ANESTHETIC [Suspect]
     Active Substance: BENZOCAINE
     Dosage: GEL ORAL 1 OZ
     Route: 048
  2. HURRICAINE TOPICAL ANESTHETIC LIQUID [Suspect]
     Active Substance: BENZOCAINE
     Dosage: LIQUID ORAL
     Route: 048

REACTIONS (1)
  - Product packaging confusion [None]
